FAERS Safety Report 7988792 (Version 2)
Quarter: 2012Q4

REPORT INFORMATION
  Report Type: 
  Country: CA (occurrence: CA)
  Receive Date: 20110613
  Receipt Date: 20121109
  Transmission Date: 20130627
  Serious: Yes (Death)
  Sender: FDA-Public Use
  Company Number: PHMT2007CA01210

PATIENT
  Sex: Male

DRUGS (5)
  1. SANDOSTATIN LAR [Suspect]
     Indication: NEUROENDOCRINE CARCINOMA
     Dosage: 60mg every 2 weeks
     Route: 030
     Dates: start: 20050908, end: 20060609
  2. SANDOSTATIN [Suspect]
     Route: 058
  3. TENORMIN [Concomitant]
  4. AVAPRO [Concomitant]
  5. NORVASC [Concomitant]

REACTIONS (8)
  - Death [Fatal]
  - Hypertension [Unknown]
  - Flushing [Unknown]
  - Anxiety [Unknown]
  - Dyspnoea [Unknown]
  - Asthenia [Unknown]
  - Diarrhoea [Unknown]
  - Nausea [Unknown]
